FAERS Safety Report 10614015 (Version 2)
Quarter: 2014Q4

REPORT INFORMATION
  Report Type: Spontaneous
  Country: US (occurrence: US)
  Receive Date: 20141128
  Receipt Date: 20141128
  Transmission Date: 20150529
  Serious: Yes (Other)
  Sender: FDA-Public Use
  Company Number: US-BRISTOL-MYERS SQUIBB COMPANY-21591813

PATIENT
  Age: 58 Year
  Sex: Female

DRUGS (32)
  1. NORCO [Concomitant]
     Active Substance: ACETAMINOPHEN\HYDROCODONE BITARTRATE
  2. COREG [Concomitant]
     Active Substance: CARVEDILOL
  3. LANTUS [Concomitant]
     Active Substance: INSULIN GLARGINE
  4. K-DUR [Concomitant]
     Active Substance: POTASSIUM CHLORIDE
  5. MOBIC [Concomitant]
     Active Substance: MELOXICAM
  6. LYRICA [Concomitant]
     Active Substance: PREGABALIN
  7. ASPIRIN. [Concomitant]
     Active Substance: ASPIRIN
  8. NOVOLOG [Concomitant]
     Active Substance: INSULIN ASPART
  9. IRON [Concomitant]
     Active Substance: IRON
  10. SALAGEN [Concomitant]
     Active Substance: PILOCARPINE HYDROCHLORIDE
  11. PREDNISOLONE. [Concomitant]
     Active Substance: PREDNISOLONE
  12. FLORICAL [Concomitant]
  13. FLEXERIL [Concomitant]
     Active Substance: CYCLOBENZAPRINE HYDROCHLORIDE
  14. LIDODERM [Concomitant]
     Active Substance: LIDOCAINE
  15. FOLIC ACID. [Concomitant]
     Active Substance: FOLIC ACID
  16. CRESTOR [Concomitant]
     Active Substance: ROSUVASTATIN CALCIUM
  17. LASIX [Concomitant]
     Active Substance: FUROSEMIDE
  18. PERCOCET [Concomitant]
     Active Substance: ACETAMINOPHEN\OXYCODONE HYDROCHLORIDE
  19. METHOTREXATE [Suspect]
     Active Substance: METHOTREXATE
     Indication: RHEUMATOID ARTHRITIS
     Dosage: 1DF: 9-10 ONCE WEEKLY?STRENGTH: 2.5MG
     Route: 048
     Dates: start: 20140729
  20. VITAMIN D [Concomitant]
     Active Substance: CHOLECALCIFEROL
  21. EPINEPHRINE. [Concomitant]
     Active Substance: EPINEPHRINE
  22. ORENCIA [Suspect]
     Active Substance: ABATACEPT
     Indication: RHEUMATOID ARTHRITIS
     Dosage: STRTD ON: 10SEP14.
     Route: 058
     Dates: start: 201206, end: 201410
  23. PLAQUENIL [Suspect]
     Active Substance: HYDROXYCHLOROQUINE SULFATE
     Indication: RHEUMATOID ARTHRITIS
     Route: 048
     Dates: start: 20140729
  24. TRAZODONE HYDROCHLORIDE. [Concomitant]
     Active Substance: TRAZODONE HYDROCHLORIDE
  25. POLYMYXIN B [Concomitant]
     Active Substance: POLYMYXIN B
  26. TRICOR [Concomitant]
     Active Substance: FENOFIBRATE
  27. PREDNISONE. [Concomitant]
     Active Substance: PREDNISONE
  28. NEXIUM [Concomitant]
     Active Substance: ESOMEPRAZOLE MAGNESIUM
  29. BONIVA [Concomitant]
     Active Substance: IBANDRONATE SODIUM
  30. VITAMIN B12 [Concomitant]
     Active Substance: CYANOCOBALAMIN
  31. CYMBALTA [Concomitant]
     Active Substance: DULOXETINE HYDROCHLORIDE
  32. METFORMIN HCL [Concomitant]
     Active Substance: METFORMIN HYDROCHLORIDE

REACTIONS (4)
  - Vaginal cancer [Unknown]
  - Carpal tunnel syndrome [Unknown]
  - Upper respiratory tract infection [Unknown]
  - Fibromyalgia [Unknown]

NARRATIVE: CASE EVENT DATE: 201409
